FAERS Safety Report 6972834 (Version 11)
Quarter: 2013Q4

REPORT INFORMATION
  Report Type: Report from Study
  Country: US (occurrence: US)
  Receive Date: 20090420
  Receipt Date: 20131108
  Transmission Date: 20140711
  Serious: Yes (Hospitalization, Other)
  Sender: FDA-Public Use
  Company Number: US-JNJFOC-20090402342

PATIENT
  Age: 15 Year
  Sex: Female
  Weight: 47.4 kg

DRUGS (18)
  1. INFLIXIMAB [Suspect]
     Indication: CROHN^S DISEASE
     Route: 042
     Dates: start: 20080820
  2. INFLIXIMAB [Suspect]
     Indication: CROHN^S DISEASE
     Route: 042
     Dates: start: 20080624
  3. INFLIXIMAB [Suspect]
     Indication: CROHN^S DISEASE
     Route: 042
     Dates: start: 20080527
  4. INFLIXIMAB [Suspect]
     Indication: CROHN^S DISEASE
     Dosage: RECEIVED INDUCTION DOSING AT WEEK 0, 2, AND 6 AND THEN MAINTENANCE OF EVERY 8 WEEKS
     Route: 042
     Dates: start: 20080515
  5. INFLIXIMAB [Suspect]
     Indication: CROHN^S DISEASE
     Route: 042
     Dates: start: 20070711
  6. INFLIXIMAB [Suspect]
     Indication: CROHN^S DISEASE
     Route: 042
     Dates: start: 20060517
  7. INFLIXIMAB [Suspect]
     Indication: CROHN^S DISEASE
     Route: 042
     Dates: start: 20090303
  8. ANTIBIOTICS [Concomitant]
     Indication: INFLAMMATORY BOWEL DISEASE
  9. ANTIBIOTICS [Concomitant]
     Indication: CROHN^S DISEASE
  10. PREDNISONE [Concomitant]
  11. HUMIRA [Concomitant]
     Dosage: TAKEN AT BASELINE VISIT 1. RECEIVED A DOSE ON 21-APR-2008
     Dates: start: 20070921
  12. HUMIRA [Concomitant]
     Dosage: LAST DOSE WAS CLOSE TO 28-APR-2008
  13. ANTIHISTAMINES [Concomitant]
     Indication: PREMEDICATION
  14. ACETAMINOPHEN [Concomitant]
     Indication: PREMEDICATION
  15. METRONIDAZOLE [Concomitant]
  16. CIPROFLOXACIN [Concomitant]
  17. POLYSACCHARIDE-IRON COMPLEX [Concomitant]
  18. PERIACTIN [Concomitant]

REACTIONS (4)
  - Large intestine perforation [Recovered/Resolved]
  - Abscess intestinal [Recovered/Resolved with Sequelae]
  - Small intestinal obstruction [Recovered/Resolved with Sequelae]
  - Melanocytic naevus [Recovered/Resolved]
